FAERS Safety Report 6109067-6 (Version None)
Quarter: 2009Q1

REPORT INFORMATION
  Report Type: 
  Country: None (occurrence: None)
  Receive Date: 20090310
  Receipt Date: 20090227
  Transmission Date: 20090719
  Serious: Yes (Hospitalization)
  Sender: FDA-Public Use
  Company Number: US-ELI_LILLY_AND_COMPANY-US200902007806

PATIENT
  Sex: Male

DRUGS (7)
  1. FORTEO [Suspect]
     Indication: OSTEOPOROSIS
     Dates: start: 20080101
  2. FORTEO [Suspect]
     Dates: start: 20090201, end: 20090201
  3. VITAMIN C                          /00008001/ [Concomitant]
  4. VITAMIN D [Concomitant]
  5. FISH OIL [Concomitant]
  6. ASPIRIN [Concomitant]
  7. CALCIUM W/VITAMIN D NOS [Concomitant]
     Dosage: 600 MG/400 IU, UNK

REACTIONS (6)
  - ANGER [None]
  - CONSTIPATION [None]
  - DEPRESSED MOOD [None]
  - DIZZINESS [None]
  - FEELING ABNORMAL [None]
  - SMALL INTESTINAL OBSTRUCTION [None]
